FAERS Safety Report 6626843-1 (Version None)
Quarter: 2010Q1

REPORT INFORMATION
  Report Type: 
  Country: None (occurrence: None)
  Receive Date: 20100309
  Receipt Date: 20100309
  Transmission Date: 20100710
  Serious: Yes (Other)
  Sender: FDA-Public Use
  Company Number: None

PATIENT
  Sex: Male
  Weight: 81.6475 kg

DRUGS (2)
  1. RISPERDAL [Suspect]
     Indication: BIPOLAR DISORDER
     Dosage: RISPERIDONE 1 MG PO Q HS
     Route: 048
     Dates: start: 20080901, end: 20080906
  2. RISPERDAL [Suspect]
     Indication: MANIA
     Dosage: RISPERIDONE 1 MG PO Q HS
     Route: 048
     Dates: start: 20080901, end: 20080906

REACTIONS (3)
  - INSOMNIA [None]
  - PRODUCT SUBSTITUTION ISSUE [None]
  - SOMNOLENCE [None]
